FAERS Safety Report 23273600 (Version 1)
Quarter: 2023Q4

REPORT INFORMATION
  Report Type: Spontaneous
  Country: MX (occurrence: MX)
  Receive Date: 20231207
  Receipt Date: 20231207
  Transmission Date: 20240110
  Serious: Yes (Death)
  Sender: FDA-Public Use
  Company Number: MX-BIOMARINAP-MX-2023-154380

PATIENT

DRUGS (1)
  1. BRINEURA [Suspect]
     Active Substance: CERLIPONASE ALFA
     Indication: Neuronal ceroid lipofuscinosis
     Dosage: UNK
     Route: 065
     Dates: start: 202107

REACTIONS (1)
  - Death [Fatal]

NARRATIVE: CASE EVENT DATE: 20210818
